FAERS Safety Report 9116124 (Version 2)
Quarter: 2013Q2

REPORT INFORMATION
  Report Type: Spontaneous
  Country: US (occurrence: US)
  Receive Date: 20130225
  Receipt Date: 20130409
  Transmission Date: 20140414
  Serious: No
  Sender: FDA-Public Use
  Company Number: US-PFIZER INC-2013064893

PATIENT
  Age: 79 Year
  Sex: Female

DRUGS (2)
  1. ZITHROMAX [Suspect]
     Indication: BRONCHITIS
     Dosage: 250 MG 2 TABS ON DAY 1 THEN 1 PO QD X 4D
     Route: 048
     Dates: start: 20051213, end: 20051218
  2. LEVOTHYROXINE [Concomitant]
     Dosage: UNK

REACTIONS (4)
  - Drug hypersensitivity [Unknown]
  - Erythema [Unknown]
  - Swelling face [Recovered/Resolved]
  - Eye swelling [Recovered/Resolved]
